FAERS Safety Report 4490759-X (Version None)
Quarter: 2004Q4

REPORT INFORMATION
  Report Type: 
  Country: None (occurrence: None)
  Receive Date: 20041027
  Receipt Date: 20041004
  Transmission Date: 20050328
  Serious: Yes (Other)
  Sender: FDA-Public Use
  Company Number: 7305

PATIENT
  Age: 18 Year
  Sex: Male

DRUGS (1)
  1. SEPTOCAINE [Suspect]
     Indication: LOCAL ANAESTHESIA
     Dosage: 2 CAPSULES INJECTED
     Dates: start: 20040716

REACTIONS (2)
  - PARAESTHESIA [None]
  - POST PROCEDURAL COMPLICATION [None]
